FAERS Safety Report 17156193 (Version 2)
Quarter: 2019Q4

REPORT INFORMATION
  Report Type: Spontaneous
  Country: IT (occurrence: IT)
  Receive Date: 20191216
  Receipt Date: 20191230
  Transmission Date: 20200122
  Serious: Yes (Other)
  Sender: FDA-Public Use
  Company Number: IT-AUROBINDO-AUR-APL-2019-104761

PATIENT
  Age: 89 Year
  Sex: Female

DRUGS (1)
  1. DONEPEZIL AUROBINDO FILM COATED TABLETS [Suspect]
     Active Substance: DONEPEZIL
     Indication: DEMENTIA
     Dosage: 5 MILLIGRAM, ONCE A DAY
     Route: 048
     Dates: end: 20191116

REACTIONS (5)
  - Tremor [Recovered/Resolved]
  - Muscle rigidity [Recovered/Resolved]
  - Diarrhoea [Recovered/Resolved]
  - Dysarthria [Recovered/Resolved]
  - Vomiting [Recovered/Resolved]

NARRATIVE: CASE EVENT DATE: 20191116
